FAERS Safety Report 18587918 (Version 18)
Quarter: 2025Q4

REPORT INFORMATION
  Report Type: Report from Study
  Country: US (occurrence: US)
  Receive Date: 20201207
  Receipt Date: 20251008
  Transmission Date: 20260118
  Serious: Yes (Hospitalization, Other)
  Sender: TAKEDA
  Company Number: US-TAKEDA-2020TUS053884

PATIENT
  Sex: Female
  Weight: 93 kg

DRUGS (37)
  1. HUMAN IMMUNOGLOBULIN G\HYALURONIDASE RECOMBINANT HUMAN [Suspect]
     Active Substance: HUMAN IMMUNOGLOBULIN G\HYALURONIDASE (HUMAN RECOMBINANT)
     Indication: Hypogammaglobulinaemia
     Dosage: 25 GRAM, Q4WEEKS
  2. ZOCOR [Suspect]
     Active Substance: SIMVASTATIN
     Indication: Product used for unknown indication
     Dosage: 20 MILLIGRAM
  3. DIPHENHYDRAMINE [Concomitant]
     Active Substance: DIPHENHYDRAMINE
     Dosage: UNK
  4. KLONOPIN [Concomitant]
     Active Substance: CLONAZEPAM
     Dosage: UNK
  5. TRIAMTERENE AND HYDROCHLOROTHIAZIDE [Concomitant]
     Active Substance: HYDROCHLOROTHIAZIDE\TRIAMTERENE
     Dosage: UNK
  6. Digestive [Concomitant]
     Dosage: UNK
  7. LIDOCAINE [Concomitant]
     Active Substance: LIDOCAINE
     Dosage: UNK
  8. EPINEPHRINE [Concomitant]
     Active Substance: EPINEPHRINE
     Dosage: UNK
  9. FISH OIL [Concomitant]
     Active Substance: FISH OIL
     Dosage: UNK
  10. FISH OIL\OMEGA-3 FATTY ACIDS [Concomitant]
     Active Substance: FISH OIL\OMEGA-3 FATTY ACIDS
     Dosage: UNK
  11. ZYRTEC [Concomitant]
     Active Substance: CETIRIZINE HYDROCHLORIDE
     Dosage: UNK
  12. VITAMIN D3 [Concomitant]
     Active Substance: CHOLECALCIFEROL
     Dosage: UNK
  13. SODIUM CHLORIDE [Concomitant]
     Active Substance: SODIUM CHLORIDE
     Dosage: UNK
  14. ACETAMINOPHEN [Concomitant]
     Active Substance: ACETAMINOPHEN
     Dosage: UNK
  15. OLMESARTAN MEDOXOMIL [Concomitant]
     Active Substance: OLMESARTAN MEDOXOMIL
     Dosage: UNK
  16. VITAMIN B [Concomitant]
     Active Substance: VITAMIN B
     Dosage: UNK
  17. ALBUTEROL SULFATE [Concomitant]
     Active Substance: ALBUTEROL SULFATE
     Dosage: UNK
  18. COLACE [Concomitant]
     Active Substance: DOCUSATE SODIUM
     Dosage: UNK
  19. DEXAMETHASONE\NEOMYCIN SULFATE\POLYMYXIN B [Concomitant]
     Active Substance: DEXAMETHASONE\NEOMYCIN SULFATE\POLYMYXIN B
     Dosage: UNK
  20. VITAMIN B12 [Concomitant]
     Active Substance: CYANOCOBALAMIN
     Dosage: UNK
  21. MONTELUKAST SODIUM [Concomitant]
     Active Substance: MONTELUKAST SODIUM
     Dosage: UNK
  22. Lmx [Concomitant]
     Dosage: UNK
  23. SODIUM CHLORIDE [Concomitant]
     Active Substance: SODIUM CHLORIDE
     Dosage: UNK
  24. VENTOLIN [Concomitant]
     Active Substance: ALBUTEROL SULFATE
     Dosage: UNK
  25. ALBUTEROL SULFATE [Concomitant]
     Active Substance: ALBUTEROL SULFATE
     Dosage: UNK
  26. TRAMADOL HCL [Concomitant]
     Active Substance: TRAMADOL HYDROCHLORIDE
     Dosage: UNK
  27. NEOMYCIN\POLYMYXIN [Concomitant]
     Active Substance: NEOMYCIN\POLYMYXIN
     Dosage: UNK
  28. DIPHENHYDRAMINE HYDROCHLORIDE [Concomitant]
     Active Substance: DIPHENHYDRAMINE HYDROCHLORIDE
     Dosage: UNK
  29. MAGNESIUM OXIDE [Concomitant]
     Active Substance: MAGNESIUM OXIDE
     Dosage: UNK
  30. MAGNESIUM CITRATE [Concomitant]
     Active Substance: MAGNESIUM CITRATE
     Dosage: UNK
  31. METOPROLOL SUCCINATE [Concomitant]
     Active Substance: METOPROLOL SUCCINATE
     Dosage: UNK
  32. CARVEDILOL [Concomitant]
     Active Substance: CARVEDILOL
     Dosage: UNK
  33. CHLORHEXIDINE GLUCONATE [Concomitant]
     Active Substance: CHLORHEXIDINE GLUCONATE
     Dosage: UNK
  34. MAGNESIUM [Concomitant]
     Active Substance: MAGNESIUM
     Dosage: UNK
  35. MEDROL [Concomitant]
     Active Substance: METHYLPREDNISOLONE
     Dosage: UNK
  36. MELATONIN [Concomitant]
     Active Substance: MELATONIN
     Dosage: UNK
  37. DOXAZOSIN MESYLATE [Concomitant]
     Active Substance: DOXAZOSIN MESYLATE
     Dosage: UNK

REACTIONS (50)
  - Hyponatraemia [Unknown]
  - Blood potassium decreased [Unknown]
  - Dehydration [Unknown]
  - Facial pain [Unknown]
  - Pain [Unknown]
  - Nephrolithiasis [Unknown]
  - Norovirus infection [Unknown]
  - Blood sodium abnormal [Unknown]
  - Blood magnesium abnormal [Unknown]
  - Headache [Unknown]
  - Hypertension [Unknown]
  - Ligament sprain [Unknown]
  - COVID-19 [Recovering/Resolving]
  - Meniscus injury [Unknown]
  - Rash pruritic [Unknown]
  - Intentional overdose [Unknown]
  - Sinusitis [Unknown]
  - Cellulitis [Unknown]
  - Tooth infection [Unknown]
  - Dermatitis contact [Unknown]
  - Gastroenteritis viral [Unknown]
  - Illness [Unknown]
  - Bronchitis [Unknown]
  - Tooth fracture [Unknown]
  - Blood magnesium decreased [Unknown]
  - Weight decreased [Unknown]
  - Inappropriate schedule of product administration [Unknown]
  - Product distribution issue [Unknown]
  - Seasonal allergy [Unknown]
  - Allergic cough [Unknown]
  - Blood magnesium increased [Unknown]
  - Blood sodium decreased [Recovered/Resolved]
  - Conjunctivitis [Recovered/Resolved]
  - Hypoaesthesia [Unknown]
  - Muscle spasms [Unknown]
  - Nausea [Unknown]
  - Arthralgia [Unknown]
  - Injection site pain [Unknown]
  - Pain in extremity [Unknown]
  - Infusion site haemorrhage [Unknown]
  - Infusion site mass [Unknown]
  - Abdominal distension [Unknown]
  - Myalgia [Unknown]
  - Back pain [Unknown]
  - Diarrhoea [Unknown]
  - Hypersensitivity [Unknown]
  - Infusion site discomfort [Unknown]
  - Vomiting [Unknown]
  - Urticaria [Unknown]
  - Insomnia [Unknown]

NARRATIVE: CASE EVENT DATE: 20240220
